FAERS Safety Report 19480969 (Version 1)
Quarter: 2021Q2

REPORT INFORMATION
  Report Type: Spontaneous
  Country: US (occurrence: US)
  Receive Date: 20210630
  Receipt Date: 20210630
  Transmission Date: 20210717
  Serious: No
  Sender: FDA-Public Use
  Company Number: US-BEIGENE USA INC-BGN-2021-002360

PATIENT

DRUGS (2)
  1. UKONIQ [Concomitant]
     Active Substance: UMBRALISIB TOSYLATE
  2. BRUKINSA [Suspect]
     Active Substance: ZANUBRUTINIB
     Indication: PRODUCT USED FOR UNKNOWN INDICATION
     Dosage: UNK
     Route: 048

REACTIONS (9)
  - Micturition urgency [Recovering/Resolving]
  - Abdominal discomfort [Unknown]
  - Musculoskeletal stiffness [Unknown]
  - Pruritus [Unknown]
  - Mental impairment [Unknown]
  - Visual impairment [Unknown]
  - Headache [Unknown]
  - Taste disorder [Unknown]
  - Tremor [Unknown]
